FAERS Safety Report 9025431 (Version 1)
Quarter: 2013Q1

REPORT INFORMATION
  Report Type: Spontaneous
  Country: FR (occurrence: FR)
  Receive Date: 20130122
  Receipt Date: 20130122
  Transmission Date: 20140127
  Serious: Yes (Death, Hospitalization)
  Sender: FDA-Public Use
  Company Number: FR-B.I. PHARMACEUTICALS,INC./RIDGEFIELD-2013-FF-00121FF

PATIENT
  Age: 91 Year
  Sex: Male

DRUGS (5)
  1. PRADAXA [Suspect]
     Indication: ATRIAL FIBRILLATION
     Dosage: 220 MG
     Route: 048
  2. AMIODARONE [Suspect]
     Indication: ATRIAL FIBRILLATION
     Dosage: 200 MG
     Route: 048
  3. KALEORID [Concomitant]
  4. PERMIXON [Concomitant]
  5. PARIET [Concomitant]

REACTIONS (2)
  - Septic shock [Fatal]
  - Anaemia [Unknown]
